FAERS Safety Report 23385315 (Version 1)
Quarter: 2024Q1

REPORT INFORMATION
  Report Type: Spontaneous
  Country: FR (occurrence: FR)
  Receive Date: 20240110
  Receipt Date: 20240110
  Transmission Date: 20240410
  Serious: Yes (Hospitalization, Other)
  Sender: FDA-Public Use
  Company Number: None

PATIENT
  Age: 38 Year
  Sex: Male

DRUGS (3)
  1. CLONAZEPAM [Suspect]
     Active Substance: CLONAZEPAM
     Dosage: 10 TABLETS OF 2 MG PER DAY
     Route: 048
     Dates: start: 2009
  2. PREGABALIN [Suspect]
     Active Substance: PREGABALIN
     Dosage: 10 CAPSULES OF 300MG PER DAY (BETWEEN 7 AND 14 CAPSULES DEPENDING ON THE SIZE OF THE PACK)?CONSU...
     Route: 048
     Dates: start: 2009
  3. COCAINE [Suspect]
     Active Substance: COCAINE
     Dosage: DAILY COCAINE USE SINCE THE AGE OF 34 (1 TO 2G PER DAY BY NASAL ROUTE)
     Route: 045
     Dates: start: 2019

REACTIONS (2)
  - Drug detoxification [Not Recovered/Not Resolved]
  - Drug dependence [Not Recovered/Not Resolved]

NARRATIVE: CASE EVENT DATE: 20230405
